FAERS Safety Report 18576575 (Version 1)
Quarter: 2020Q4

REPORT INFORMATION
  Report Type: Spontaneous
  Country: GB (occurrence: US)
  Receive Date: 20201203
  Receipt Date: 20201203
  Transmission Date: 20210114
  Serious: Yes (Hospitalization, Congenital Anomaly)
  Sender: FDA-Public Use
  Company Number: GB-MYLANLABS-2020M1099231

PATIENT
  Sex: Male
  Weight: 3.23 kg

DRUGS (1)
  1. DOLUTEGRAVIR [Suspect]
     Active Substance: DOLUTEGRAVIR
     Indication: ANTIRETROVIRAL THERAPY
     Route: 064

REACTIONS (3)
  - Meningocele [Unknown]
  - Foetal exposure during pregnancy [Recovered/Resolved]
  - Neural tube defect [Unknown]

NARRATIVE: CASE EVENT DATE: 20180505
